FAERS Safety Report 5304177-5 (Version None)
Quarter: 2007Q2

REPORT INFORMATION
  Report Type: 
  Country: None (occurrence: None)
  Receive Date: 20070423
  Receipt Date: 20070409
  Transmission Date: 20071010
  Serious: Yes (Hospitalization, Other)
  Sender: FDA-Public Use
  Company Number: PHNR2007AU00951

PATIENT
  Age: 55 Year
  Sex: Female

DRUGS (2)
  1. ZELMAC [Suspect]
     Dates: start: 20020101
  2. CONTRACEPTIVES UNS [Concomitant]

REACTIONS (5)
  - MYOCARDIAL INFARCTION [None]
  - MYOCARDITIS [None]
  - MYOPATHY [None]
  - TROPONIN INCREASED [None]
  - VENTRICULAR DYSFUNCTION [None]
